FAERS Safety Report 23230077 (Version 1)
Quarter: 2023Q4

REPORT INFORMATION
  Report Type: Spontaneous
  Country: US (occurrence: US)
  Receive Date: 20231127
  Receipt Date: 20231127
  Transmission Date: 20240109
  Serious: Yes (Other)
  Sender: FDA-Public Use
  Company Number: US-BECTON DICKINSON-US-BD-23-000408

PATIENT
  Age: 67 Year
  Sex: Female

DRUGS (1)
  1. ISOPROPYL ALCOHOL\POVIDONE-IODINE [Suspect]
     Active Substance: ISOPROPYL ALCOHOL\POVIDONE-IODINE
     Indication: Infection prophylaxis
     Dosage: UNK
     Route: 061

REACTIONS (2)
  - Hyperthyroidism [Recovering/Resolving]
  - Thyroid adenoma [Recovering/Resolving]
